FAERS Safety Report 6316463-0 (Version None)
Quarter: 2009Q3

REPORT INFORMATION
  Report Type: 
  Country: None (occurrence: None)
  Receive Date: 20090819
  Receipt Date: 20090819
  Transmission Date: 20100115
  Serious: Yes (Hospitalization)
  Sender: FDA-Public Use
  Company Number: None

PATIENT
  Sex: Female
  Weight: 65 kg

DRUGS (1)
  1. SPIRONOLACTONE [Suspect]
     Indication: HIRSUTISM
     Dosage: 100 MG TWICE A DAY BUCCAL
     Route: 002

REACTIONS (5)
  - BLOOD POTASSIUM INCREASED [None]
  - BLOOD SODIUM DECREASED [None]
  - HYPOTENSION [None]
  - MALAISE [None]
  - RASH GENERALISED [None]
